FAERS Safety Report 7817454-0 (Version None)
Quarter: 2011Q4

REPORT INFORMATION
  Report Type: 
  Country: None (occurrence: None)
  Receive Date: 20111017
  Receipt Date: 20111005
  Transmission Date: 20120403
  Serious: Yes (Hospitalization, Other)
  Sender: FDA-Public Use
  Company Number: ES-ELI_LILLY_AND_COMPANY-ES201109004732

PATIENT
  Sex: Male
  Weight: 58 kg

DRUGS (6)
  1. GEMCITABINE HYDROCHLORIDE [Suspect]
     Indication: NON-SMALL CELL LUNG CANCER
     Dosage: 1975 MG, UNKNOWN
     Route: 042
     Dates: start: 20110914, end: 20110914
  2. SPIRIVA [Concomitant]
     Indication: BRONCHITIS
     Dosage: 18 UG, UNKNOWN
  3. CISPLATIN [Suspect]
     Indication: NON-SMALL CELL LUNG CANCER
     Dosage: 118 MG, UNKNOWN
     Route: 042
     Dates: start: 20110914, end: 20110914
  4. ASPIRIN [Concomitant]
     Indication: THROMBOSIS PROPHYLAXIS
     Dosage: 100 MG, UNKNOWN
  5. ALBUTEROL [Concomitant]
     Indication: BRONCHITIS
     Dosage: 100 UG, UNK
  6. MEGEFREN [Concomitant]
     Indication: INCREASED APPETITE
     Dosage: 160 MG, UNKNOWN

REACTIONS (4)
  - DYSPNOEA [None]
  - CARDIAC FAILURE [None]
  - ACUTE PULMONARY OEDEMA [None]
  - RESPIRATORY FAILURE [None]
